FAERS Safety Report 7645111-2 (Version None)
Quarter: 2011Q3

REPORT INFORMATION
  Report Type: 
  Country: None (occurrence: None)
  Receive Date: 20110729
  Receipt Date: 20110726
  Transmission Date: 20111222
  Serious: Yes (Life-Threatening, Hospitalization)
  Sender: FDA-Public Use
  Company Number: PHHO2011US08159

PATIENT
  Sex: Male
  Weight: 87 kg

DRUGS (3)
  1. AFINITOR [Suspect]
     Indication: HODGKIN'S DISEASE
     Dosage: 10 MG, QD
     Route: 048
     Dates: start: 20110408, end: 20110506
  2. AFINITOR [Suspect]
     Dosage: 10 MG, QD
     Route: 048
     Dates: start: 20110509, end: 20110516
  3. AFINITOR [Suspect]
     Dosage: 5 MG, QD
     Route: 048
     Dates: start: 20110607

REACTIONS (2)
  - COMPLEX REGIONAL PAIN SYNDROME [None]
  - ANKLE FRACTURE [None]
